FAERS Safety Report 9849047 (Version 1)
Quarter: 2013Q4

REPORT INFORMATION
  Report Type: Spontaneous
  Country: US (occurrence: None)
  Receive Date: 20131224
  Receipt Date: 20131224
  Transmission Date: 20140711
  Serious: Yes (Other)
  Sender: FDA-Public Use
  Company Number: PHEH2013US002185

PATIENT
  Age: 60 Year
  Sex: Female

DRUGS (5)
  1. RITALIN [Suspect]
     Route: 048
     Dates: start: 20130123
  2. LISINOPRIL (LISINOPRIL) [Concomitant]
  3. ATENOLOL (ATENOLOL), 25 MG [Concomitant]
  4. PRILOSEC (OMEPRAZOLE) [Concomitant]
  5. NATEGLINIDE (NATEGLINIDE) [Concomitant]

REACTIONS (4)
  - Blood pressure increased [None]
  - Tinnitus [None]
  - Headache [None]
  - Nausea [None]
